FAERS Safety Report 5569499-1 (Version None)
Quarter: 2007Q4

REPORT INFORMATION
  Report Type: 
  Country: None (occurrence: None)
  Receive Date: 20071220
  Receipt Date: 20071218
  Transmission Date: 20080405
  Serious: Yes (Hospitalization)
  Sender: FDA-Public Use
  Company Number: NL-WYE-G00556107

PATIENT
  Age: 53 Year
  Sex: Female

DRUGS (1)
  1. EFFEXOR XR [Suspect]
     Indication: MAJOR DEPRESSION
     Route: 048
     Dates: start: 20051001, end: 20071001

REACTIONS (1)
  - ARTERIOSPASM CORONARY [None]
